FAERS Safety Report 23988899 (Version 1)
Quarter: 2024Q2

REPORT INFORMATION
  Report Type: Spontaneous
  Country: US (occurrence: US)
  Receive Date: 20240619
  Receipt Date: 20240619
  Transmission Date: 20240715
  Serious: Yes (Other)
  Sender: FDA-Public Use
  Company Number: US-CHIESI-2024CHF03544

PATIENT
  Age: 71 Year
  Sex: Male

DRUGS (2)
  1. CLEVIPREX [Suspect]
     Active Substance: CLEVIDIPINE
     Indication: Coronary artery bypass
     Dosage: UNK
     Route: 042
  2. CLEVIPREX [Suspect]
     Active Substance: CLEVIDIPINE
     Indication: Off label use

REACTIONS (2)
  - Hypoxia [Recovered/Resolved]
  - Off label use [Unknown]

NARRATIVE: CASE EVENT DATE: 20240301
